FAERS Safety Report 15219652 (Version 6)
Quarter: 2019Q1

REPORT INFORMATION
  Report Type: Spontaneous
  Country: US (occurrence: US)
  Receive Date: 20180731
  Receipt Date: 20190114
  Transmission Date: 20190417
  Serious: Yes (Other)
  Sender: FDA-Public Use
  Company Number: US-SA-2018SA207156

PATIENT
  Age: 31 Year
  Sex: Female

DRUGS (10)
  1. DIPHENOXYLATE/ATROPINE [Concomitant]
     Active Substance: ATROPINE\DIPHENOXYLATE
     Dosage: 1 TAB
     Dates: start: 20180723
  2. CLONAZEPAM. [Concomitant]
     Active Substance: CLONAZEPAM
     Dosage: BID
     Route: 048
  3. KAOPECTATE [KAOLIN] [Concomitant]
  4. IBUPROFEN. [Concomitant]
     Active Substance: IBUPROFEN
     Dosage: 400 MG, PRN
     Route: 048
  5. ZOLPIDEM [Concomitant]
     Active Substance: ZOLPIDEM\ZOLPIDEM TARTRATE
     Dosage: 10 MG
     Route: 048
  6. CYMBALTA [Concomitant]
     Active Substance: DULOXETINE HYDROCHLORIDE
     Dosage: 60 MG
  7. LEMTRADA [Suspect]
     Active Substance: ALEMTUZUMAB
     Indication: RELAPSING-REMITTING MULTIPLE SCLEROSIS
     Dosage: 12 MG
     Route: 041
     Dates: start: 20180531
  8. BACTRIM [Concomitant]
     Active Substance: SULFAMETHOXAZOLE\TRIMETHOPRIM
     Indication: PROPHYLAXIS
  9. LEVOTHYROXINE. [Concomitant]
     Active Substance: LEVOTHYROXINE
     Dosage: DOSE- 75 MCG
     Route: 048
  10. VITAMIN D3 [Concomitant]
     Active Substance: CHOLECALCIFEROL
     Dosage: 50000 U, QW

REACTIONS (22)
  - Blood chloride abnormal [Unknown]
  - Blood glucose increased [Unknown]
  - Eosinophil count increased [Unknown]
  - Diarrhoea [Unknown]
  - Headache [Unknown]
  - Frequent bowel movements [Unknown]
  - Vomiting [Unknown]
  - Blood creatine abnormal [Recovered/Resolved]
  - Alanine aminotransferase increased [Unknown]
  - Blood alkaline phosphatase increased [Unknown]
  - Clostridium difficile colitis [Unknown]
  - Hypokalaemic syndrome [Unknown]
  - Blood potassium abnormal [Unknown]
  - Blood potassium decreased [Unknown]
  - Red cell distribution width increased [Unknown]
  - Pyrexia [Unknown]
  - Gait disturbance [Unknown]
  - Back pain [Unknown]
  - Asthenia [Unknown]
  - Arthralgia [Unknown]
  - Eosinophil percentage increased [Unknown]
  - Lymphocyte percentage decreased [Unknown]

NARRATIVE: CASE EVENT DATE: 201807
